FAERS Safety Report 24646938 (Version 2)
Quarter: 2024Q4

REPORT INFORMATION
  Report Type: Report from Study
  Country: IT (occurrence: IT)
  Receive Date: 20241121
  Receipt Date: 20241217
  Transmission Date: 20250114
  Serious: Yes (Other)
  Sender: RANBAXY
  Company Number: IT-SUN PHARMACEUTICAL INDUSTRIES LTD-2024RR-479397

PATIENT
  Age: 82 Year
  Sex: Male

DRUGS (1)
  1. IMATINIB [Interacting]
     Active Substance: IMATINIB
     Indication: Product used for unknown indication
     Dosage: 400 MILLIGRAM, DAILY
     Route: 065

REACTIONS (5)
  - Drug-disease interaction [Unknown]
  - Toxicity to various agents [Unknown]
  - Drug level increased [Unknown]
  - Oedema peripheral [Unknown]
  - Gynaecomastia [Unknown]
